FAERS Safety Report 22043687 (Version 3)
Quarter: 2023Q1

REPORT INFORMATION
  Report Type: Report from Study
  Country: TW (occurrence: TW)
  Receive Date: 20230228
  Receipt Date: 20230320
  Transmission Date: 20230418
  Serious: Yes (Other)
  Sender: FDA-Public Use
  Company Number: TW-BAYER-2023A024190

PATIENT
  Sex: Male

DRUGS (15)
  1. EYLEA [Suspect]
     Active Substance: AFLIBERCEPT
     Indication: Neovascular age-related macular degeneration
     Dosage: 0.05 ML, ONCE, SOLUTION FOR INJECTION, 40MG/ML
     Route: 031
     Dates: start: 202006, end: 202006
  2. EYLEA [Suspect]
     Active Substance: AFLIBERCEPT
     Dosage: 0.05 ML, ONCE, SOLUTION FOR INJECTION, 40MG/ML
     Route: 031
  3. EYLEA [Suspect]
     Active Substance: AFLIBERCEPT
     Dosage: 0.05 ML, ONCE, SOLUTION FOR INJECTION, 40MG/ML
     Route: 031
  4. EYLEA [Suspect]
     Active Substance: AFLIBERCEPT
     Dosage: 0.05 ML, ONCE, SOLUTION FOR INJECTION, 40MG/ML
     Route: 031
     Dates: start: 202103, end: 202103
  5. EYLEA [Suspect]
     Active Substance: AFLIBERCEPT
     Dosage: 0.05 ML, ONCE, SOLUTION FOR INJECTION, 40MG/ML
     Route: 031
     Dates: start: 202104, end: 202104
  6. EYLEA [Suspect]
     Active Substance: AFLIBERCEPT
     Dosage: 0.05 ML, ONCE, SOLUTION FOR INJECTION, 40MG/ML
     Route: 031
     Dates: start: 202105, end: 202105
  7. EYLEA [Suspect]
     Active Substance: AFLIBERCEPT
     Dosage: 0.05 ML, ONCE, SOLUTION FOR INJECTION, 40MG/ML
     Route: 031
     Dates: start: 20210924, end: 20210924
  8. EYLEA [Suspect]
     Active Substance: AFLIBERCEPT
     Dosage: 0.05 ML, ONCE, SOLUTION FOR INJECTION, 40MG/ML
     Route: 031
     Dates: start: 20211228, end: 20211228
  9. EYLEA [Suspect]
     Active Substance: AFLIBERCEPT
     Dosage: 0.05 ML, ONCE, SOLUTION FOR INJECTION, 40MG/ML
     Route: 031
     Dates: start: 20220209, end: 20220209
  10. EYLEA [Suspect]
     Active Substance: AFLIBERCEPT
     Dosage: 0.05 ML, ONCE, SOLUTION FOR INJECTION, 40MG/ML
     Route: 031
     Dates: start: 20220420, end: 20220420
  11. EYLEA [Suspect]
     Active Substance: AFLIBERCEPT
     Dosage: 0.05 ML, ONCE, SOLUTION FOR INJECTION, 40MG/ML
     Route: 031
     Dates: start: 20220615, end: 20220615
  12. EYLEA [Suspect]
     Active Substance: AFLIBERCEPT
     Dosage: 0.05 ML, ONCE, SOLUTION FOR INJECTION, 40MG/ML
     Route: 031
     Dates: start: 20220824, end: 20220824
  13. EYLEA [Suspect]
     Active Substance: AFLIBERCEPT
     Dosage: 0.05 ML, ONCE, SOLUTION FOR INJECTION, 40MG/ML
     Route: 031
     Dates: start: 20221116, end: 20221116
  14. EYLEA [Suspect]
     Active Substance: AFLIBERCEPT
     Dosage: 0.05 ML, ONCE, SOLUTION FOR INJECTION, 40MG/ML
     Route: 031
     Dates: start: 20230118, end: 20230118
  15. EYLEA [Suspect]
     Active Substance: AFLIBERCEPT
     Dosage: 0.05 ML, ONCE, SOLUTION FOR INJECTION, 40MG/ML
     Route: 031
     Dates: start: 20230215

REACTIONS (5)
  - Vitreous haemorrhage [Recovering/Resolving]
  - Inappropriate schedule of product administration [Unknown]
  - Product prescribing issue [Unknown]
  - Product prescribing issue [Unknown]
  - Inappropriate schedule of product administration [Unknown]

NARRATIVE: CASE EVENT DATE: 20210301
